FAERS Safety Report 17606868 (Version 1)
Quarter: 2020Q1

REPORT INFORMATION
  Report Type: Spontaneous
  Country: BR (occurrence: BR)
  Receive Date: 20200331
  Receipt Date: 20200331
  Transmission Date: 20200409
  Serious: Yes (Other)
  Sender: FDA-Public Use
  Company Number: NVSC2020BR028634

PATIENT
  Age: 70 Year
  Sex: Female
  Weight: 70 kg

DRUGS (2)
  1. COSENTYX [Suspect]
     Active Substance: SECUKINUMAB
     Indication: PSORIASIS
     Dosage: 300 MG, QW (2 X 150 MG PENS ONCE A WEEK FOR 5 WEEKS AND THEN ONCE A MONTH)
     Route: 065
     Dates: start: 201911
  2. COSENTYX [Suspect]
     Active Substance: SECUKINUMAB
     Dosage: 300 MG, QW
     Route: 065
     Dates: start: 201911

REACTIONS (5)
  - Eczema [Unknown]
  - Impetigo [Unknown]
  - HTLV-1 test positive [Unknown]
  - Scar [Unknown]
  - Effusion [Unknown]

NARRATIVE: CASE EVENT DATE: 202001
